FAERS Safety Report 10177959 (Version 2)
Quarter: 2014Q2

REPORT INFORMATION
  Report Type: Spontaneous
  Country: US (occurrence: US)
  Receive Date: 20140516
  Receipt Date: 20140516
  Transmission Date: 20141212
  Serious: Yes (Hospitalization, Other)
  Sender: FDA-Public Use
  Company Number: US-RB-067340-14

PATIENT
  Age: 23 Year
  Sex: Male

DRUGS (1)
  1. SUBOXONE TABLET [Suspect]
     Indication: PRODUCT USED FOR UNKNOWN INDICATION
     Dosage: DOSING DETAILS UNKNOWN
     Route: 065

REACTIONS (4)
  - Pancreatitis chronic [Recovered/Resolved]
  - Choledochal cyst [Recovered/Resolved]
  - Complication of device removal [Recovered/Resolved]
  - Cholecystitis [Recovered/Resolved]
